FAERS Safety Report 15763261 (Version 12)
Quarter: 2020Q3

REPORT INFORMATION
  Report Type: Report from Study
  Country: US (occurrence: US)
  Receive Date: 20181227
  Receipt Date: 20200730
  Transmission Date: 20201102
  Serious: Yes (Hospitalization)
  Sender: FDA-Public Use
  Company Number: US-ACTELION-A-NJ2018-184089

PATIENT
  Age: 40 Year
  Sex: Female
  Weight: 48.53 kg

DRUGS (7)
  1. OPSUMIT [Suspect]
     Active Substance: MACITENTAN
     Dosage: 10 MG, QD
     Route: 048
  2. TYVASO [Suspect]
     Active Substance: TREPROSTINIL
     Indication: PRODUCT USED FOR UNKNOWN INDICATION
     Dosage: 12 BREATHS 4XDAILY
     Route: 065
  3. REVATIO [Concomitant]
     Active Substance: SILDENAFIL CITRATE
  4. ELIQUIS [Concomitant]
     Active Substance: APIXABAN
     Indication: THROMBOSIS
  5. OPSUMIT [Suspect]
     Active Substance: MACITENTAN
     Indication: PULMONARY HYPERTENSION
     Dosage: 10 MG, QD
     Route: 048
  6. TADALAFIL. [Concomitant]
     Active Substance: TADALAFIL
  7. AMLODIPINE [Concomitant]
     Active Substance: AMLODIPINE BESYLATE

REACTIONS (31)
  - Chest discomfort [Unknown]
  - Decreased appetite [Unknown]
  - Abdominal pain upper [Unknown]
  - Chest pain [Unknown]
  - Gait disturbance [Unknown]
  - Insomnia [Unknown]
  - Food allergy [Unknown]
  - Pruritus [Unknown]
  - Urticaria [Unknown]
  - Sepsis [Unknown]
  - Pulmonary embolism [Not Recovered/Not Resolved]
  - Dizziness [Unknown]
  - Hospitalisation [Unknown]
  - Amnesia [Unknown]
  - Bronchitis [Unknown]
  - Pulmonary arterial hypertension [Unknown]
  - Cardiac failure congestive [Unknown]
  - Hyperhidrosis [Unknown]
  - Respiratory disorder [Unknown]
  - Cough [Unknown]
  - Infection [Unknown]
  - Feeling abnormal [Unknown]
  - Dyspnoea [Unknown]
  - Malaise [Unknown]
  - Hot flush [Unknown]
  - Thrombosis [Recovering/Resolving]
  - Back pain [Unknown]
  - Asthenia [Unknown]
  - Fatigue [Unknown]
  - Confusional state [Unknown]
  - Diarrhoea [Unknown]

NARRATIVE: CASE EVENT DATE: 20181201
